FAERS Safety Report 21612711 (Version 1)
Quarter: 2022Q4

REPORT INFORMATION
  Report Type: Spontaneous
  Country: AT (occurrence: AT)
  Receive Date: 20221118
  Receipt Date: 20221118
  Transmission Date: 20230112
  Serious: Yes (Death, Hospitalization, Other)
  Sender: FDA-Public Use
  Company Number: AT-ALKEM LABORATORIES LIMITED-AT-ALKEM-2022-12657

PATIENT
  Age: 78 Year
  Sex: Female

DRUGS (2)
  1. METFORMIN HYDROCHLORIDE [Suspect]
     Active Substance: METFORMIN HYDROCHLORIDE
     Indication: Diabetes mellitus
     Dosage: 850 MILLIGRAM, BID
     Route: 065
  2. Biphasic insulin [Concomitant]
     Indication: Diabetes mellitus
     Dosage: (16-0-12 IU) BID
     Route: 065

REACTIONS (3)
  - Lactic acidosis [Fatal]
  - Metabolic acidosis [Fatal]
  - Pneumonia [Fatal]
